FAERS Safety Report 23699798 (Version 1)
Quarter: 2024Q2

REPORT INFORMATION
  Report Type: Spontaneous
  Country: GB (occurrence: GB)
  Receive Date: 20240403
  Receipt Date: 20240403
  Transmission Date: 20240715
  Serious: Yes (Other)
  Sender: FDA-Public Use
  Company Number: GB-ALKEM LABORATORIES LIMITED-GB-ALKEM-2024-06193

PATIENT
  Age: 71 Year
  Sex: Male

DRUGS (1)
  1. AZATHIOPRINE [Suspect]
     Active Substance: AZATHIOPRINE
     Indication: Product used for unknown indication
     Dosage: 0.5 MILLIGRAM/KILOGRAM, QD (DAILY) (50 MG)
     Route: 065

REACTIONS (1)
  - Hepatitis cholestatic [Recovered/Resolved]
